FAERS Safety Report 14123790 (Version 1)
Quarter: 2017Q4

REPORT INFORMATION
  Report Type: Spontaneous
  Country: US (occurrence: US)
  Receive Date: 20171025
  Receipt Date: 20171025
  Transmission Date: 20180321
  Serious: No
  Sender: FDA-Public Use
  Company Number: US-KERYX BIOPHARMACEUTICALS, INC.-2017US002866

PATIENT
  Age: 13 Year
  Sex: Female
  Weight: 31.2 kg

DRUGS (13)
  1. AURYXIA [Suspect]
     Active Substance: TETRAFERRIC TRICITRATE DECAHYDRATE
     Dosage: 1 G (1 TABLET), TID
     Dates: start: 20150612, end: 20150918
  2. SEVELAMER [Concomitant]
     Active Substance: SEVELAMER
     Indication: PRODUCT USED FOR UNKNOWN INDICATION
     Dosage: 4.8 G, TID
  3. AURYXIA [Suspect]
     Active Substance: TETRAFERRIC TRICITRATE DECAHYDRATE
     Dosage: 2 G (2 TABLETS), TID
     Dates: start: 20150918, end: 20160226
  4. CALCIUM [Concomitant]
     Active Substance: CALCIUM
     Dosage: 2 TAB, TID
  5. AURYXIA [Suspect]
     Active Substance: TETRAFERRIC TRICITRATE DECAHYDRATE
     Indication: HYPERPHOSPHATAEMIA
     Dosage: 1 G (1 TABLET), TID
     Dates: start: 20150320, end: 20150529
  6. CALCIUM [Concomitant]
     Active Substance: CALCIUM
     Indication: PRODUCT USED FOR UNKNOWN INDICATION
     Dosage: 2 TAB, TID
  7. CALCIUM [Concomitant]
     Active Substance: CALCIUM
     Dosage: 2 TAB, TID
  8. SEVELAMER [Concomitant]
     Active Substance: SEVELAMER
     Dosage: 4.8 G, TID
  9. AURYXIA [Suspect]
     Active Substance: TETRAFERRIC TRICITRATE DECAHYDRATE
     Dosage: 2 G (2 TABLETS), TID
     Dates: start: 20160922
  10. SEVELAMER [Concomitant]
     Active Substance: SEVELAMER
     Dosage: 4.8 G, TID
  11. AURYXIA [Suspect]
     Active Substance: TETRAFERRIC TRICITRATE DECAHYDRATE
     Dosage: 1 G (1 TABLET), TID
     Dates: start: 20160226, end: 20160922
  12. AURYXIA [Suspect]
     Active Substance: TETRAFERRIC TRICITRATE DECAHYDRATE
     Dosage: 2 G (2 TABLETS), TID
     Dates: start: 20150529, end: 20150612
  13. CALCIUM [Concomitant]
     Active Substance: CALCIUM
     Dosage: 2 TAB, TID

REACTIONS (1)
  - Drug administered to patient of inappropriate age [Unknown]

NARRATIVE: CASE EVENT DATE: 20150320
